FAERS Safety Report 8244813-7 (Version None)
Quarter: 2012Q1

REPORT INFORMATION
  Report Type: 
  Country: None (occurrence: None)
  Receive Date: 20120329
  Receipt Date: 20110504
  Transmission Date: 20120608
  Serious: Yes (Hospitalization)
  Sender: FDA-Public Use
  Company Number: US-MYLANLABS-2011S1009355

PATIENT
  Sex: Female

DRUGS (5)
  1. LIPITOR [Concomitant]
     Indication: BLOOD CHOLESTEROL
  2. HYDROCODONE BITARTRATE [Concomitant]
     Indication: PAIN
  3. TOPROL-XL [Concomitant]
  4. FENTANYL-100 [Suspect]
     Indication: PAIN
     Dosage: CHANGED Q72H
     Route: 062
     Dates: start: 20090201, end: 20090301
  5. AMLODIPINE [Concomitant]
     Indication: BLOOD PRESSURE INCREASED

REACTIONS (4)
  - VISION BLURRED [None]
  - HEART RATE INCREASED [None]
  - ASTHENIA [None]
  - DIZZINESS [None]
